FAERS Safety Report 4634252-X (Version None)
Quarter: 2005Q2

REPORT INFORMATION
  Report Type: 
  Country: None (occurrence: None)
  Receive Date: 20050413
  Receipt Date: 20050323
  Transmission Date: 20051028
  Serious: Yes (Death, Hospitalization, Other)
  Sender: FDA-Public Use
  Company Number: PHBS2005JP04235

PATIENT
  Age: 82 Year
  Sex: Male

DRUGS (3)
  1. SANDIMMUNE [Suspect]
     Indication: PSORIASIS
     Route: 048
     Dates: start: 19870101
  2. SANDIMMUNE [Suspect]
     Route: 048
     Dates: start: 19950101, end: 20000101
  3. STEROIDS NOS [Concomitant]
     Indication: PSORIASIS
     Route: 061

REACTIONS (5)
  - ANAPLASTIC LARGE CELL LYMPHOMA T- AND NULL-CELL TYPES [None]
  - CEREBRAL HAEMORRHAGE [None]
  - METASTASES TO BONE [None]
  - METASTASES TO PLEURA [None]
  - RESPIRATORY FAILURE [None]
